FAERS Safety Report 17037803 (Version 1)
Quarter: 2019Q4

REPORT INFORMATION
  Report Type: Spontaneous
  Country: DE (occurrence: DE)
  Receive Date: 20191115
  Receipt Date: 20191115
  Transmission Date: 20200122
  Serious: Yes (Other)
  Sender: FDA-Public Use
  Company Number: DE-TEVA-2019-DE-1135303

PATIENT
  Age: 82 Year
  Sex: Male

DRUGS (1)
  1. TAMSULOSIN-RATIOPHARM 0,4 MG HARTKAPSELN MIT VER?NDERTER WIRKSTOFFFREI [Suspect]
     Active Substance: TAMSULOSIN
     Indication: NOCTURIA
     Dosage: .4 MILLIGRAM DAILY;
     Route: 048
     Dates: start: 20190904, end: 20190909

REACTIONS (3)
  - Bladder obstruction [Not Recovered/Not Resolved]
  - Prostatomegaly [Not Recovered/Not Resolved]
  - Urinary retention [Recovered/Resolved]

NARRATIVE: CASE EVENT DATE: 201909
